FAERS Safety Report 20372040 (Version 2)
Quarter: 2022Q1

REPORT INFORMATION
  Report Type: Spontaneous
  Country: US (occurrence: US)
  Receive Date: 20220124
  Receipt Date: 20220124
  Transmission Date: 20220423
  Serious: Yes (Hospitalization)
  Sender: FDA-Public Use
  Company Number: US-FERRINGPH-2021FE00675

PATIENT
  Age: 65 Year
  Sex: Female
  Weight: 30 kg

DRUGS (9)
  1. CLENPIQ [Suspect]
     Active Substance: ANHYDROUS CITRIC ACID\MAGNESIUM OXIDE\SODIUM PICOSULFATE
     Indication: Constipation
     Dosage: UNK
     Route: 065
     Dates: start: 20210112
  2. TYVASO [Suspect]
     Active Substance: TREPROSTINIL
     Indication: Pulmonary arterial hypertension
     Dosage: UNK
     Dates: start: 20201229
  3. TYVASO [Suspect]
     Active Substance: TREPROSTINIL
     Dosage: 18-54 MCG 3-9 BREATHS), 4 TIMES DAILY
  4. TYVASO [Suspect]
     Active Substance: TREPROSTINIL
     Dosage: 30 UG, (5 BREATHS), 4 TIMES DAILY
  5. TYVASO [Suspect]
     Active Substance: TREPROSTINIL
     Dosage: 24 MCG (4 BREATHS) 3 TIMES DAILY AND 18 MCG (3 BREATHS) ONCE DAILY
  6. TYVASO [Suspect]
     Active Substance: TREPROSTINIL
     Dosage: 60-120 MCG (10-20 BREATHS), 4 TIMES DAILY
  7. TYVASO [Suspect]
     Active Substance: TREPROSTINIL
     Dosage: 18 MCG (3 BREATHS) OR 24 MCG (4 BREATHS)
  8. TYVASO [Suspect]
     Active Substance: TREPROSTINIL
     Dosage: 60-120 ?G, (10-20 BREATHS), 4 TIMES DAILY
  9. TYVASO [Suspect]
     Active Substance: TREPROSTINIL
     Dosage: 60-120 ?G, (10-20 BREATHS), 4 TIMES DAILY

REACTIONS (8)
  - Vomiting [Unknown]
  - Nausea [Unknown]
  - Lung disorder [Unknown]
  - Cough [Unknown]
  - Malaise [Unknown]
  - Abdominal pain [Unknown]
  - Product use in unapproved indication [Unknown]
  - Off label use [Unknown]

NARRATIVE: CASE EVENT DATE: 20210101
